FAERS Safety Report 24654619 (Version 1)
Quarter: 2024Q4

REPORT INFORMATION
  Report Type: Spontaneous
  Country: BG (occurrence: BG)
  Receive Date: 20241122
  Receipt Date: 20241122
  Transmission Date: 20250115
  Serious: Yes (Other)
  Sender: BRISTOL-MYERS SQUIBB COMPANY
  Company Number: BG-BRISTOL-MYERS SQUIBB COMPANY-2024-178413

PATIENT
  Age: 58 Year
  Sex: Male

DRUGS (1)
  1. INREBIC [Suspect]
     Active Substance: FEDRATINIB HYDROCHLORIDE
     Indication: Primary myelofibrosis
     Dosage: 400MG/DAY
     Route: 048
     Dates: start: 202408

REACTIONS (8)
  - Anaemia [Unknown]
  - Intra-abdominal fluid collection [Unknown]
  - Pelvic fluid collection [Unknown]
  - Hepatomegaly [Unknown]
  - Lymphadenopathy [Unknown]
  - Hepatic cirrhosis [Unknown]
  - Diarrhoea [Recovered/Resolved]
  - Localised infection [Unknown]

NARRATIVE: CASE EVENT DATE: 20240901
